FAERS Safety Report 10203888 (Version 1)
Quarter: 2014Q2

REPORT INFORMATION
  Report Type: Spontaneous
  Country: US (occurrence: US)
  Receive Date: 20140529
  Receipt Date: 20140529
  Transmission Date: 20141212
  Serious: No
  Sender: FDA-Public Use
  Company Number: US-PFIZER INC-2014146456

PATIENT
  Age: 73 Year
  Sex: Female
  Weight: 46.71 kg

DRUGS (2)
  1. NEURONTIN [Suspect]
     Indication: SCIATICA
     Dosage: 900 MG, UNK
     Dates: start: 2013, end: 2014
  2. METHOTREXATE [Concomitant]
     Dosage: UNK

REACTIONS (3)
  - Amnesia [Recovered/Resolved]
  - Disturbance in attention [Recovered/Resolved]
  - Mental disorder [Recovered/Resolved]
